FAERS Safety Report 10421078 (Version 1)
Quarter: 2014Q3

REPORT INFORMATION
  Report Type: Spontaneous
  Country: US (occurrence: None)
  Receive Date: 20140722
  Receipt Date: 20140722
  Transmission Date: 20150326
  Serious: No
  Sender: FDA-Public Use
  Company Number: 163-10004-14053252

PATIENT
  Age: 50 Year
  Sex: Female
  Weight: 113.4 kg

DRUGS (8)
  1. TOPICORT [Concomitant]
     Active Substance: DESOXIMETASONE
  2. BENADRYL (DIPHENHYRAMINE HYDROCHLORIDE) [Concomitant]
  3. TMC (TRIAMCINOLONE-) (CREAM) [Concomitant]
  4. NAPROSYN (NAPROXEN) [Concomitant]
  5. CLARITIN [Concomitant]
     Active Substance: LORATADINE
  6. OTEZLA [Suspect]
     Active Substance: APREMILAST
     Indication: PSORIATIC ARTHROPATHY
     Route: 048
     Dates: start: 20140418, end: 20140429
  7. DUEXIS (FAMOTIDINE W/ IBUPROFEN) [Concomitant]
  8. ATARAX [Concomitant]
     Active Substance: HYDROXYZINE\HYDROXYZINE HYDROCHLORIDE

REACTIONS (4)
  - Abdominal pain [None]
  - Nausea [None]
  - Fatigue [None]
  - Diarrhoea [None]

NARRATIVE: CASE EVENT DATE: 20140420
